FAERS Safety Report 8882328 (Version 1)
Quarter: 2012Q4

REPORT INFORMATION
  Report Type: 
  Country: US (occurrence: US)
  Receive Date: 20121102
  Receipt Date: 20121102
  Transmission Date: 20130627
  Serious: No
  Sender: FDA-Public Use
  Company Number: US-ASTRAZENECA-2012SE80253

PATIENT
  Age: 40 Year
  Sex: Male

DRUGS (3)
  1. NEXIUM [Suspect]
     Route: 048
  2. SEROQUEL XR [Suspect]
     Indication: ANXIETY
     Route: 048
  3. SEROQUEL XR [Suspect]
     Indication: DEPRESSION
     Route: 048

REACTIONS (4)
  - Adverse event [Unknown]
  - Impaired work ability [Unknown]
  - Medication error [Unknown]
  - Drug ineffective [Unknown]
